FAERS Safety Report 18571383 (Version 1)
Quarter: 2020Q4

REPORT INFORMATION
  Report Type: Spontaneous
  Country: IT (occurrence: IT)
  Receive Date: 20201202
  Receipt Date: 20201202
  Transmission Date: 20210114
  Serious: Yes (Other)
  Sender: FDA-Public Use
  Company Number: NVSC2020IT317454

PATIENT
  Age: 37 Year
  Sex: Male

DRUGS (1)
  1. FINGOLIMOD. [Suspect]
     Active Substance: FINGOLIMOD
     Indication: MULTIPLE SCLEROSIS
     Dosage: UNK
     Route: 065
     Dates: start: 2015, end: 201910

REACTIONS (4)
  - Hemiparesis [Recovering/Resolving]
  - Neurological decompensation [Recovering/Resolving]
  - Dizziness [Recovering/Resolving]
  - Ataxia [Recovering/Resolving]
